FAERS Safety Report 5245161-X (Version None)
Quarter: 2007Q1

REPORT INFORMATION
  Report Type: 
  Country: None (occurrence: None)
  Receive Date: 20070223
  Receipt Date: 20070212
  Transmission Date: 20070707
  Serious: Yes (Other)
  Sender: FDA-Public Use
  Company Number: PHBS2007BR02857

PATIENT
  Age: 62 Year
  Sex: Female
  Weight: 63 kg

DRUGS (3)
  1. LAMISIL [Suspect]
     Indication: NAIL TINEA
     Route: 048
  2. HIDANTAL [Concomitant]
     Indication: MEMORY IMPAIRMENT
     Dosage: 2 TAB/DAY
     Route: 048
  3. ALPRAZ [Concomitant]
     Indication: ANXIETY
     Dosage: 1 TAB/DAY
     Route: 048

REACTIONS (2)
  - ANEURYSM [None]
  - DIARRHOEA [None]
